FAERS Safety Report 17504561 (Version 1)
Quarter: 2020Q1

REPORT INFORMATION
  Report Type: Spontaneous
  Country: US (occurrence: US)
  Receive Date: 20200305
  Receipt Date: 20200305
  Transmission Date: 20200409
  Serious: Yes (Other)
  Sender: FDA-Public Use
  Company Number: US-PFIZER INC-2020098803

PATIENT
  Age: 48 Year
  Sex: Female

DRUGS (5)
  1. BIOTIN [Concomitant]
     Active Substance: BIOTIN
     Dosage: UNK, 2500 MC
  2. VITAMIN K1 [Concomitant]
     Active Substance: PHYTONADIONE
     Dosage: UNK,10 MG/M
  3. LACTAID FAST ACT [Concomitant]
     Active Substance: LACTASE
     Dosage: UNK, 9000 UN
  4. IBRANCE [Suspect]
     Active Substance: PALBOCICLIB
     Indication: BREAST CANCER
     Dosage: 75 MG, CYCLIC (1 DAILY FOR 21 DAYS)
     Dates: start: 20191101
  5. VITAMIN D3 [Concomitant]
     Active Substance: CHOLECALCIFEROL
     Dosage: 25 UG, UNK

REACTIONS (2)
  - Abdominal distension [Recovering/Resolving]
  - Pneumonia [Recovering/Resolving]
